FAERS Safety Report 12980571 (Version 1)
Quarter: 2016Q4

REPORT INFORMATION
  Report Type: Spontaneous
  Country: US (occurrence: US)
  Receive Date: 20161128
  Receipt Date: 20161128
  Transmission Date: 20170207
  Serious: No
  Sender: FDA-Public Use
  Company Number: US-TEIKOKU PHARMA USA-TPU2016-00754

PATIENT
  Age: 46 Year
  Sex: Female

DRUGS (1)
  1. LIDODERM [Suspect]
     Active Substance: LIDOCAINE

REACTIONS (1)
  - Drug intolerance [Unknown]
